FAERS Safety Report 16868859 (Version 2)
Quarter: 2019Q4

REPORT INFORMATION
  Report Type: Report from Study
  Country: GB (occurrence: GB)
  Receive Date: 20190930
  Receipt Date: 20191002
  Transmission Date: 20200122
  Serious: Yes (Hospitalization, Other)
  Sender: FDA-Public Use
  Company Number: GB-BAUSCH-BL-2019-055488

PATIENT
  Age: 54 Year
  Sex: Male

DRUGS (3)
  1. KYNTHEUM [Suspect]
     Active Substance: BRODALUMAB
     Dosage: RE-INTRODUCED
     Route: 058
     Dates: start: 2019
  2. KYNTHEUM [Suspect]
     Active Substance: BRODALUMAB
     Indication: PSORIASIS
     Dosage: AT WEEK 0, 1, 2 AND THEN EVERY WEEKS
     Route: 058
     Dates: start: 20190315, end: 2019
  3. KYNTHEUM [Suspect]
     Active Substance: BRODALUMAB
     Dosage: AT WEEK 0, 1, 2 AND THEN EVERY WEEKS
     Route: 058
     Dates: start: 2019, end: 2019

REACTIONS (1)
  - Sepsis [Recovering/Resolving]

NARRATIVE: CASE EVENT DATE: 2019
